FAERS Safety Report 17386600 (Version 4)
Quarter: 2022Q3

REPORT INFORMATION
  Report Type: Spontaneous
  Country: HU (occurrence: HU)
  Receive Date: 20200206
  Receipt Date: 20220805
  Transmission Date: 20221027
  Serious: Yes (Life-Threatening, Hospitalization, Other)
  Sender: FDA-Public Use
  Company Number: HU-BRISTOL-MYERS SQUIBB COMPANY-BMS-2020-008775

PATIENT
  Age: 42 Year
  Sex: Male
  Weight: 87 kg

DRUGS (2)
  1. OPDIVO [Suspect]
     Active Substance: NIVOLUMAB
     Indication: Malignant melanoma
     Dosage: 3 MILLIGRAM/KILOGRAM
     Route: 065
  2. YERVOY [Suspect]
     Active Substance: IPILIMUMAB
     Indication: Malignant melanoma
     Dosage: 1X261MG, AS PART OF COMBINED IMMUNOTHERAPY WITH NIVOLUMAB
     Route: 042
     Dates: start: 20200106, end: 20200106

REACTIONS (7)
  - Pyrexia [Recovered/Resolved]
  - Cytokine release syndrome [Recovered/Resolved]
  - Malignant neoplasm progression [Unknown]
  - Intentional product use issue [Unknown]
  - Rash maculo-papular [Recovered/Resolved]
  - C-reactive protein increased [Recovered/Resolved]
  - Troponin increased [Recovered/Resolved]

NARRATIVE: CASE EVENT DATE: 20200106
